FAERS Safety Report 6656001-6 (Version None)
Quarter: 2010Q1

REPORT INFORMATION
  Report Type: 
  Country: None (occurrence: None)
  Receive Date: 20100329
  Receipt Date: 20100317
  Transmission Date: 20100710
  Serious: Yes (Other)
  Sender: FDA-Public Use
  Company Number: GB-PFIZER INC-2010034111

PATIENT
  Age: 33 Year
  Sex: Female
  Weight: 69.85 kg

DRUGS (1)
  1. CHAMPIX [Suspect]
     Indication: SMOKING CESSATION THERAPY
     Dosage: 1 MG, 2X/DAY
     Route: 048
     Dates: start: 20100209

REACTIONS (2)
  - ALCOHOL INTERACTION [None]
  - SELF INJURIOUS BEHAVIOUR [None]
